FAERS Safety Report 5066490-9 (Version None)
Quarter: 2006Q3

REPORT INFORMATION
  Report Type: 
  Country: None (occurrence: None)
  Receive Date: 20060717
  Receipt Date: 20050823
  Transmission Date: 20061208
  Serious: Yes (Death)
  Sender: FDA-Public Use
  Company Number: 2005-08-1682

PATIENT
  Age: 74 Year
  Sex: Female

DRUGS (4)
  1. INTEGRILIN [Suspect]
     Indication: ACUTE MYOCARDIAL INFARCTION
     Dosage: 180-2MCG INTRAVENOUS; 3 DOSES
     Route: 042
  2. LOVENOX [Suspect]
     Indication: ACUTE MYOCARDIAL INFARCTION
     Dosage: 1MG-30 MG SUBCUTANEOUS; 2 DOSES
     Route: 058
  3. PLAVIX [Suspect]
     Dosage: 600 MG ORAL; 1 DOSE
     Route: 048
  4. METOPROLOL [Concomitant]

REACTIONS (1)
  - RETROPERITONEAL HAEMATOMA [None]
